FAERS Safety Report 13748545 (Version 1)
Quarter: 2017Q3

REPORT INFORMATION
  Report Type: Report from Study
  Country: IT (occurrence: IT)
  Receive Date: 20170713
  Receipt Date: 20170713
  Transmission Date: 20171127
  Serious: Yes (Hospitalization, Other)
  Sender: FDA-Public Use
  Company Number: PHHO2015IT017843

PATIENT
  Age: 64 Year
  Sex: Female
  Weight: 61 kg

DRUGS (64)
  1. KCL [Concomitant]
     Active Substance: POTASSIUM CHLORIDE
     Dosage: 1200 MG, BID
     Route: 048
     Dates: start: 20150701, end: 20150701
  2. POTASSIUM CANRENOATE [Concomitant]
     Active Substance: CANRENOATE POTASSIUM
     Indication: HYPOKALAEMIA
     Dosage: 200 MG, SINGLE
     Route: 042
     Dates: start: 20150606, end: 20150606
  3. POTASSIUM CHLORIDE. [Concomitant]
     Active Substance: POTASSIUM CHLORIDE
     Dosage: 20 MEQ, SINGLE
     Route: 042
     Dates: start: 20150608, end: 20150608
  4. FUROSEMIDE. [Concomitant]
     Active Substance: FUROSEMIDE
     Dosage: 20 MG, SINGLE
     Route: 042
     Dates: start: 20150611, end: 20150611
  5. FUROSEMIDE. [Concomitant]
     Active Substance: FUROSEMIDE
     Dosage: 25 MG, SINGLE
     Route: 048
     Dates: start: 20150621, end: 20150621
  6. PHYSIOLOGICAL SALINE SOLUTION [Concomitant]
     Active Substance: SODIUM CHLORIDE
     Indication: PRODUCT USED FOR UNKNOWN INDICATION
     Dosage: 500 ML, ONCE/SINGLE
     Route: 042
     Dates: start: 20150606, end: 20150606
  7. PHYSIOLOGICAL SALINE SOLUTION [Concomitant]
     Active Substance: SODIUM CHLORIDE
     Dosage: 100 ML, ONCE/SINGLE
     Route: 042
     Dates: start: 20150622, end: 20150622
  8. CANRENONE [Concomitant]
     Active Substance: CANRENONE
     Dosage: 50 MG, SINGLE
     Route: 048
     Dates: start: 20150608, end: 20150608
  9. ALBUMIN HUMAN [Concomitant]
     Active Substance: ALBUMIN HUMAN
     Indication: BLOOD ALBUMIN ABNORMAL
     Dosage: 50 ML, SINGLE
     Route: 042
     Dates: start: 20150605, end: 20150605
  10. ALBUMIN HUMAN [Concomitant]
     Active Substance: ALBUMIN HUMAN
     Dosage: 50 ML, BID
     Route: 042
     Dates: start: 20150607, end: 20150610
  11. ALBUMIN HUMAN [Concomitant]
     Active Substance: ALBUMIN HUMAN
     Dosage: 50 ML, SINGLE
     Route: 042
     Dates: start: 20150611, end: 20150611
  12. CALCIJEX [Concomitant]
     Active Substance: CALCITRIOL
     Indication: CHRONIC KIDNEY DISEASE-MINERAL AND BONE DISORDER
     Dosage: 0.25 ?G, 1D
     Route: 048
     Dates: start: 20150606
  13. POTASSIUM CANRENOATE [Concomitant]
     Active Substance: CANRENOATE POTASSIUM
     Dosage: 200 MG, SINGLE
     Route: 042
     Dates: start: 20150608, end: 20150608
  14. POTASSIUM CANRENOATE [Concomitant]
     Active Substance: CANRENOATE POTASSIUM
     Dosage: 200 MG, SINGLE
     Route: 042
     Dates: start: 20150609, end: 20150609
  15. POTASSIUM CHLORIDE. [Concomitant]
     Active Substance: POTASSIUM CHLORIDE
     Indication: HYPOKALAEMIA
     Dosage: 40 MEQ, SINGLE
     Route: 042
     Dates: start: 20150607, end: 20150607
  16. URSILON [Concomitant]
     Dosage: 300 MG, BID
     Route: 048
     Dates: start: 20150619
  17. TACHIPIRINA [Concomitant]
     Active Substance: ACETAMINOPHEN
     Indication: PYREXIA
     Dosage: 500 MG, PRN
     Route: 048
     Dates: start: 20150622, end: 20150722
  18. MEROPENEM. [Concomitant]
     Active Substance: MEROPENEM
     Dosage: 500 MG, TID
     Route: 042
     Dates: start: 20150623, end: 20150623
  19. FUROSEMIDE. [Concomitant]
     Active Substance: FUROSEMIDE
     Indication: POLYURIA
     Dosage: 4 ML, SINGLE
     Route: 042
     Dates: start: 20150605, end: 20150605
  20. FUROSEMIDE. [Concomitant]
     Active Substance: FUROSEMIDE
     Dosage: 25 MG, SINGLE
     Route: 048
     Dates: start: 20150620, end: 20150620
  21. KCL [Concomitant]
     Active Substance: POTASSIUM CHLORIDE
     Dosage: 1200 MG, TID
     Route: 048
     Dates: start: 20150617, end: 20150630
  22. CALCIUM GLUCONATE. [Concomitant]
     Active Substance: CALCIUM GLUCONATE
     Indication: HYPOCALCAEMIA
     Dosage: 4.5 MEQ, SINGLE
     Route: 042
     Dates: start: 20150607, end: 20150607
  23. VITAMIN K1 [Concomitant]
     Active Substance: PHYTONADIONE
     Dosage: 10 MG, SINGLE
     Route: 048
     Dates: start: 20150609, end: 20150609
  24. CALCIUM CARBONATE. [Concomitant]
     Active Substance: CALCIUM CARBONATE
     Dosage: 1000 MG, SINGLE
     Route: 048
     Dates: start: 20150701
  25. MEROPENEM. [Concomitant]
     Active Substance: MEROPENEM
     Indication: INFECTION
     Dosage: 500 MG, BID
     Route: 042
     Dates: start: 20150622, end: 20150622
  26. FUROSEMIDE. [Concomitant]
     Active Substance: FUROSEMIDE
     Dosage: 40 MG, SINGLE
     Route: 042
     Dates: start: 20150609, end: 20150609
  27. FUROSEMIDE. [Concomitant]
     Active Substance: FUROSEMIDE
     Dosage: 50 MG, BID
     Route: 048
     Dates: start: 20150612, end: 20150619
  28. FUROSEMIDE. [Concomitant]
     Active Substance: FUROSEMIDE
     Dosage: 25 MG, SINGLE
     Route: 048
     Dates: start: 20150623, end: 20150623
  29. PHYSIOLOGICAL SALINE SOLUTION [Concomitant]
     Active Substance: SODIUM CHLORIDE
     Dosage: 100 ML, ONCE/SINGLE
     Route: 042
     Dates: start: 20150609, end: 20150609
  30. KCL [Concomitant]
     Active Substance: POTASSIUM CHLORIDE
     Indication: HYPOKALAEMIA
     Dosage: 1200 MG
     Route: 048
     Dates: start: 20150608, end: 20150608
  31. CHOLESTYRAMINE. [Concomitant]
     Active Substance: CHOLESTYRAMINE
     Dosage: 4 G, 1D
     Route: 048
     Dates: start: 20150612, end: 20150612
  32. URSILON [Concomitant]
     Indication: PROPHYLAXIS
     Dosage: 300 MG, SINGLE
     Route: 048
     Dates: start: 20150618, end: 20150618
  33. TRAMETINIB [Suspect]
     Active Substance: TRAMETINIB
     Indication: MALIGNANT MELANOMA
     Dosage: 2 MG, QD
     Route: 048
     Dates: start: 20140812, end: 20150515
  34. BISOPROLOLO [Concomitant]
     Active Substance: BISOPROLOL FUMARATE
     Dosage: 2.5 MG, SINGLE
     Route: 048
     Dates: start: 20150622, end: 20150622
  35. ALBITAL [Concomitant]
     Active Substance: ALBUMIN HUMAN
     Indication: BLOOD ALBUMIN INCREASED
     Dosage: 50 ML, BID
     Route: 042
     Dates: start: 20150619, end: 20150622
  36. PERFALGAN [Concomitant]
     Active Substance: ACETAMINOPHEN
     Indication: PYREXIA
     Dosage: 1 G, PRN
     Route: 042
     Dates: start: 20150619, end: 20150619
  37. INVANZ [Concomitant]
     Active Substance: ERTAPENEM SODIUM
     Indication: INFECTION
     Dosage: 1 G, 1D
     Route: 042
     Dates: start: 20150624, end: 20150629
  38. FUROSEMIDE. [Concomitant]
     Active Substance: FUROSEMIDE
     Dosage: 20 MG, BID
     Route: 042
     Dates: start: 20150610, end: 20150610
  39. FUROSEMIDE. [Concomitant]
     Active Substance: FUROSEMIDE
     Dosage: 2 ML, SINGLE
     Route: 042
     Dates: start: 20150629, end: 20150629
  40. PHYSIOLOGICAL SALINE SOLUTION [Concomitant]
     Active Substance: SODIUM CHLORIDE
     Indication: PRODUCT USED FOR UNKNOWN INDICATION
     Dosage: 100 ML, ONCE/SINGLE
     Route: 042
     Dates: start: 20150606, end: 20150606
  41. DABRAFENIB [Suspect]
     Active Substance: DABRAFENIB
     Indication: MALIGNANT MELANOMA
     Dosage: 150 MG, BID
     Route: 048
     Dates: start: 20140811, end: 20141030
  42. DABRAFENIB [Suspect]
     Active Substance: DABRAFENIB
     Dosage: 100 MG, BID
     Route: 048
     Dates: start: 20141031, end: 20150515
  43. BISOPROLOLO [Concomitant]
     Active Substance: BISOPROLOL FUMARATE
     Dosage: 2.5 MG, BID
     Route: 048
     Dates: start: 20150606, end: 20150621
  44. BISOPROLOLO [Concomitant]
     Active Substance: BISOPROLOL FUMARATE
     Dosage: 2.5 MG, BID
     Route: 048
     Dates: start: 20150623, end: 20150623
  45. MEROPENEM. [Concomitant]
     Active Substance: MEROPENEM
     Dosage: 500 MG, BID
     Route: 042
     Dates: start: 20150624, end: 20150624
  46. CANRENONE [Concomitant]
     Active Substance: CANRENONE
     Indication: HYPOKALAEMIA
     Dosage: 50 MG, 1D
     Route: 048
     Dates: start: 20150606, end: 20150607
  47. CANRENONE [Concomitant]
     Active Substance: CANRENONE
     Dosage: 100 MG, SINGLE
     Route: 048
     Dates: start: 20150608, end: 20150624
  48. VITAMIN K1 [Concomitant]
     Active Substance: PHYTONADIONE
     Indication: VITAMIN K DEFICIENCY
     Dosage: 2.5 MG, SINGLE
     Route: 048
     Dates: start: 20150608, end: 20150608
  49. CHOLESTYRAMINE. [Concomitant]
     Active Substance: CHOLESTYRAMINE
     Indication: BILE ACID MALABSORPTION
     Dosage: 4 G, SINGLE
     Route: 048
     Dates: start: 20150616, end: 20150616
  50. CHOLESTYRAMINE. [Concomitant]
     Active Substance: CHOLESTYRAMINE
     Dosage: 4 G, TID
     Route: 048
     Dates: start: 20150613, end: 20150628
  51. POTASSIUM CHLORIDE. [Concomitant]
     Active Substance: POTASSIUM CHLORIDE
     Dosage: 40 MEQ, SINGLE
     Route: 042
     Dates: start: 20150609, end: 20150609
  52. CALCIUM CARBONATE. [Concomitant]
     Active Substance: CALCIUM CARBONATE
     Indication: HYPOCALCAEMIA
     Dosage: 1000 MG, BID
     Route: 048
     Dates: start: 20150608, end: 20150630
  53. ALDACTONE [Concomitant]
     Active Substance: SPIRONOLACTONE
     Indication: HYPERTENSION
     Dosage: 25 MG, 1D
     Route: 048
     Dates: start: 20150625
  54. FUROSEMIDE. [Concomitant]
     Active Substance: FUROSEMIDE
     Dosage: 40 MG, BID
     Route: 042
     Dates: start: 20150606, end: 20150608
  55. PHYSIOLOGICAL SALINE SOLUTION [Concomitant]
     Active Substance: SODIUM CHLORIDE
     Indication: PRODUCT USED FOR UNKNOWN INDICATION
     Dosage: 100 ML, ONCE/SINGLE
     Route: 042
     Dates: start: 20150608, end: 20150608
  56. PHYSIOLOGICAL SALINE SOLUTION [Concomitant]
     Active Substance: SODIUM CHLORIDE
     Dosage: 100 ML, ONCE/SINGLE
     Route: 042
     Dates: start: 20150724, end: 20150729
  57. ALBUMIN HUMAN [Concomitant]
     Active Substance: ALBUMIN HUMAN
     Dosage: 50 ML, TID
     Route: 042
     Dates: start: 20150606, end: 20150606
  58. GLUCOSE [Concomitant]
     Active Substance: DEXTROSE
     Indication: PRODUCT USED FOR UNKNOWN INDICATION
     Dosage: 250 ML, SINGLE
     Route: 042
     Dates: start: 20150608, end: 20150608
  59. BISOPROLOLO [Concomitant]
     Active Substance: BISOPROLOL FUMARATE
     Indication: HYPERTENSION
     Dosage: 2.5 MG, SINGLE
     Route: 048
     Dates: start: 20150605, end: 20150605
  60. BISOPROLOLO [Concomitant]
     Active Substance: BISOPROLOL FUMARATE
     Dosage: 2.5 MG, QD
     Route: 048
     Dates: start: 20150624
  61. FUROSEMIDE. [Concomitant]
     Active Substance: FUROSEMIDE
     Dosage: 20 MG, SINGLE
     Route: 042
     Dates: start: 20150609, end: 20150609
  62. FUROSEMIDE. [Concomitant]
     Active Substance: FUROSEMIDE
     Dosage: 20 MG, SINGLE
     Route: 042
     Dates: start: 20150619, end: 20150619
  63. PHYSIOLOGICAL SALINE SOLUTION [Concomitant]
     Active Substance: SODIUM CHLORIDE
     Indication: PRODUCT USED FOR UNKNOWN INDICATION
     Dosage: 100 ML, ONCE/SINGLE
     Route: 042
     Dates: start: 20150607, end: 20150607
  64. PHYSIOLOGICAL SALINE SOLUTION [Concomitant]
     Active Substance: SODIUM CHLORIDE
     Dosage: 100 ML, ONCE/SINGLE
     Route: 042
     Dates: start: 20150623, end: 20150623

REACTIONS (1)
  - Nephrotic syndrome [Recovered/Resolved]

NARRATIVE: CASE EVENT DATE: 20150515
